FAERS Safety Report 7932083-6 (Version None)
Quarter: 2011Q4

REPORT INFORMATION
  Report Type: 
  Country: None (occurrence: None)
  Receive Date: 20111121
  Receipt Date: 20111110
  Transmission Date: 20120403
  Serious: Yes (Other)
  Sender: FDA-Public Use
  Company Number: GB-GILEAD-2011-0046803

PATIENT
  Age: 40 Year
  Sex: Female

DRUGS (4)
  1. REVATIO [Concomitant]
  2. AMBRISENTAN [Suspect]
     Dosage: 10 MG, UNK
  3. AMBRISENTAN [Suspect]
     Indication: PRODUCT USED FOR UNKNOWN INDICATION
     Dosage: 5 MG, UNK
     Route: 065
  4. VENTAVIS [Concomitant]
     Dosage: UNK

REACTIONS (1)
  - HAEMOLYTIC ANAEMIA [None]
